FAERS Safety Report 8439012-X (Version None)
Quarter: 2012Q2

REPORT INFORMATION
  Report Type: 
  Country: None (occurrence: None)
  Receive Date: 20120615
  Receipt Date: 20120606
  Transmission Date: 20120825
  Serious: Yes (Other)
  Sender: FDA-Public Use
  Company Number: GB-AMGEN-GBRSP2012036593

PATIENT
  Age: 75 Year
  Sex: Female

DRUGS (1)
  1. ENBREL [Suspect]
     Indication: RHEUMATOID ARTHRITIS
     Dosage: 50 MG, WEEKLY
     Route: 058
     Dates: start: 20120530, end: 20120606

REACTIONS (12)
  - SLEEP DISORDER [None]
  - FATIGUE [None]
  - URTICARIA [None]
  - INCREASED APPETITE [None]
  - VISION BLURRED [None]
  - ANXIETY [None]
  - THINKING ABNORMAL [None]
  - NAUSEA [None]
  - WEIGHT INCREASED [None]
  - BURNING SENSATION [None]
  - POLLAKIURIA [None]
  - PARAESTHESIA [None]
